FAERS Safety Report 9469386 (Version 2)
Quarter: 2013Q3

REPORT INFORMATION
  Report Type: Spontaneous
  Country: LV (occurrence: LV)
  Receive Date: 20130821
  Receipt Date: 20130821
  Transmission Date: 20140515
  Serious: Yes (Other)
  Sender: FDA-Public Use
  Company Number: LV-ABBOTT-13X-287-1094488-00

PATIENT
  Age: 21 Year
  Sex: Female

DRUGS (6)
  1. DEPAKINE CHRONO [Suspect]
     Indication: EPILEPSY
     Route: 048
     Dates: start: 201301
  2. DEPAKINE CHRONO [Suspect]
     Route: 048
     Dates: start: 201304, end: 201304
  3. DEPAKINE CHRONO [Suspect]
     Dosage: 750 MG DAILY; (MORNING 250 MG, EVENING 500 MG)
     Dates: start: 201304
  4. DEPAKINE CHRONO [Suspect]
     Route: 048
     Dates: start: 201304, end: 201304
  5. DEPAKINE CHRONO [Suspect]
     Route: 048
     Dates: start: 201304, end: 201304
  6. LEXOTANIL [Concomitant]
     Indication: PRODUCT USED FOR UNKNOWN INDICATION
     Dates: start: 201301

REACTIONS (4)
  - Abdominal distension [Unknown]
  - Convulsion [Recovering/Resolving]
  - Alopecia [Recovering/Resolving]
  - Weight increased [Not Recovered/Not Resolved]
